FAERS Safety Report 11723099 (Version 1)
Quarter: 2015Q4

REPORT INFORMATION
  Report Type: Spontaneous
  Country: CA (occurrence: CA)
  Receive Date: 20151111
  Receipt Date: 20151111
  Transmission Date: 20160304
  Serious: Yes (Other)
  Sender: FDA-Public Use
  Company Number: CA-BAUSCH-BL-2015-026277

PATIENT
  Age: 22 Year
  Sex: Male

DRUGS (11)
  1. BUPROPION XL [Suspect]
     Active Substance: BUPROPION
     Indication: DEPRESSIVE SYMPTOM
     Dosage: USING ALTERNATING FOREARMS, CONSUMED AN AVERAGE OF 1 TABLET PER HOUR, INJECTED 30 TABLETS OVER 48 HO
  2. HEROIN [Concomitant]
     Active Substance: DIACETYLMORPHINE
     Indication: PRODUCT USED FOR UNKNOWN INDICATION
     Route: 042
  3. QUETIAPINE [Concomitant]
     Active Substance: QUETIAPINE
     Indication: PRODUCT USED FOR UNKNOWN INDICATION
     Dosage: AT BEDTIME
  4. CLONAZEPAM. [Concomitant]
     Active Substance: CLONAZEPAM
     Indication: ANXIETY
     Dosage: AS REQUIRED
  5. OXYCONTIN [Concomitant]
     Active Substance: OXYCODONE HYDROCHLORIDE
     Indication: PRODUCT USED FOR UNKNOWN INDICATION
     Route: 042
  6. HYDROMORPHONE [Concomitant]
     Active Substance: HYDROMORPHONE
     Indication: PRODUCT USED FOR UNKNOWN INDICATION
     Route: 042
  7. BUPROPION. [Concomitant]
     Active Substance: BUPROPION
     Indication: PRODUCT USED FOR UNKNOWN INDICATION
     Route: 042
  8. CITALOPRAM [Concomitant]
     Active Substance: CITALOPRAM HYDROBROMIDE
     Indication: PRODUCT USED FOR UNKNOWN INDICATION
  9. COCAINE [Concomitant]
     Active Substance: COCAINE
     Indication: PRODUCT USED FOR UNKNOWN INDICATION
     Route: 042
  10. TRAZODONE [Concomitant]
     Active Substance: TRAZODONE HYDROCHLORIDE
     Indication: PRODUCT USED FOR UNKNOWN INDICATION
     Dosage: AT BEDTIME
  11. MORPHINE [Concomitant]
     Active Substance: MORPHINE
     Indication: PRODUCT USED FOR UNKNOWN INDICATION
     Route: 042

REACTIONS (9)
  - Hallucination, visual [Recovered/Resolved]
  - Toxicity to various agents [Recovered/Resolved]
  - Peripheral venous disease [Unknown]
  - Drug abuse [Unknown]
  - Persecutory delusion [Unknown]
  - Peripheral swelling [Unknown]
  - Incorrect route of drug administration [Unknown]
  - Pain in extremity [Unknown]
  - Vascular wall hypertrophy [Unknown]
